FAERS Safety Report 23016092 (Version 1)
Quarter: 2023Q4

REPORT INFORMATION
  Report Type: Spontaneous
  Country: US (occurrence: US)
  Receive Date: 20231002
  Receipt Date: 20231002
  Transmission Date: 20240110
  Serious: Yes (Hospitalization, Other)
  Sender: FDA-Public Use
  Company Number: US-GSK-US2023131570

PATIENT

DRUGS (1)
  1. TRELEGY ELLIPTA [Suspect]
     Active Substance: FLUTICASONE FUROATE\UMECLIDINIUM BROMIDE\VILANTEROL TRIFENATATE
     Indication: Chronic obstructive pulmonary disease
     Dosage: UNK; 100/62.5/25MCG INH 30

REACTIONS (3)
  - Retinal vascular thrombosis [Recovering/Resolving]
  - Optic ischaemic neuropathy [Unknown]
  - Visual impairment [Unknown]

NARRATIVE: CASE EVENT DATE: 20230901
